FAERS Safety Report 19757534 (Version 1)
Quarter: 2021Q3

REPORT INFORMATION
  Report Type: Spontaneous
  Country: DE (occurrence: DE)
  Receive Date: 20210828
  Receipt Date: 20210828
  Transmission Date: 20211014
  Serious: Yes (Hospitalization, Other)
  Sender: FDA-Public Use
  Company Number: DE-ACCORD-236578

PATIENT
  Age: 64 Year
  Sex: Male

DRUGS (2)
  1. LEVOTHYROXINE. [Concomitant]
     Active Substance: LEVOTHYROXINE
     Dosage: 1?0?0?0
  2. ESCITALOPRAM [Suspect]
     Active Substance: ESCITALOPRAM OXALATE
     Indication: PRODUCT USED FOR UNKNOWN INDICATION
     Dosage: 1?0?0?0

REACTIONS (7)
  - Retrograde amnesia [Unknown]
  - Insomnia [Unknown]
  - Disorientation [Unknown]
  - Burnout syndrome [Unknown]
  - Seizure [Unknown]
  - Memory impairment [Unknown]
  - Fall [Unknown]
